FAERS Safety Report 11904535 (Version 2)
Quarter: 2016Q1

REPORT INFORMATION
  Report Type: Report from Study
  Country: US (occurrence: US)
  Receive Date: 20160111
  Receipt Date: 20160118
  Transmission Date: 20160526
  Serious: No
  Sender: FDA-Public Use
  Company Number: US-AMGEN-USASL2016000523

PATIENT
  Age: 51 Year
  Sex: Female

DRUGS (1)
  1. ENBREL [Suspect]
     Active Substance: ETANERCEPT
     Indication: RHEUMATOID ARTHRITIS
     Dosage: 50 MG, QWK
     Route: 065
     Dates: start: 20151231

REACTIONS (6)
  - Wrong technique in product usage process [Unknown]
  - Contusion [Unknown]
  - Pain of skin [Unknown]
  - Injection site pain [Unknown]
  - Nausea [Unknown]
  - Injection site bruising [Unknown]

NARRATIVE: CASE EVENT DATE: 20151231
